APPROVED DRUG PRODUCT: NAPROXEN SODIUM
Active Ingredient: NAPROXEN SODIUM
Strength: EQ 250MG BASE
Dosage Form/Route: TABLET;ORAL
Application: A074495 | Product #001
Applicant: SANDOZ INC
Approved: Dec 5, 1994 | RLD: No | RS: No | Type: DISCN